FAERS Safety Report 22141299 (Version 2)
Quarter: 2024Q4

REPORT INFORMATION
  Report Type: Spontaneous
  Country: US (occurrence: US)
  Receive Date: 20230327
  Receipt Date: 20241021
  Transmission Date: 20250115
  Serious: Yes (Other)
  Sender: CSL BEHRING
  Company Number: US-BEH-2023156758

PATIENT
  Sex: Female
  Weight: 71.202 kg

DRUGS (3)
  1. HIZENTRA [Suspect]
     Active Substance: HUMAN IMMUNOGLOBULIN G
     Indication: Immunodeficiency common variable
     Dosage: 4 GRAM, QW
     Route: 058
  2. HIZENTRA [Suspect]
     Active Substance: HUMAN IMMUNOGLOBULIN G
     Dosage: 4 GRAM, QW
     Route: 058
     Dates: start: 202206
  3. LASIX [Concomitant]
     Active Substance: FUROSEMIDE
     Dosage: UNK, TIW

REACTIONS (13)
  - Neoplasm malignant [Unknown]
  - Urine output decreased [Unknown]
  - Urine flow decreased [Unknown]
  - Urinary tract infection [Unknown]
  - Vomiting [Recovered/Resolved]
  - Insomnia [Recovered/Resolved]
  - Brain fog [Recovered/Resolved]
  - Nephropathy [Unknown]
  - Hypoaesthesia [Unknown]
  - Weight decreased [Unknown]
  - Decreased appetite [Unknown]
  - Illness [Unknown]
  - Infection [Unknown]
